FAERS Safety Report 24748864 (Version 1)
Quarter: 2024Q4

REPORT INFORMATION
  Report Type: Spontaneous
  Country: CN (occurrence: CN)
  Receive Date: 20241218
  Receipt Date: 20241218
  Transmission Date: 20250114
  Serious: Yes (Other)
  Sender: JOHNSON AND JOHNSON
  Company Number: CN-JNJFOC-20241231992

PATIENT

DRUGS (1)
  1. TOPIRAMATE [Suspect]
     Active Substance: TOPIRAMATE
     Indication: Alcohol use disorder
     Route: 065

REACTIONS (26)
  - Hallucination [Unknown]
  - Delirium [Unknown]
  - Nephrolithiasis [Unknown]
  - Narcolepsy [Unknown]
  - Product use in unapproved indication [Unknown]
  - Paraesthesia [Unknown]
  - Memory impairment [Unknown]
  - Somnolence [Unknown]
  - Weight decreased [Unknown]
  - Confusional state [Unknown]
  - Disturbance in attention [Unknown]
  - Taste disorder [Unknown]
  - Priapism [Unknown]
  - Restlessness [Unknown]
  - Disorientation [Unknown]
  - Visual impairment [Unknown]
  - Ammonia increased [Unknown]
  - Belligerence [Unknown]
  - Corneal oedema [Unknown]
  - Speech disorder [Unknown]
  - Dry mouth [Unknown]
  - Ocular hyperaemia [Unknown]
  - Confusional state [Unknown]
  - Maternal exposure timing unspecified [Unknown]
  - Hypersomnia [Unknown]
  - Behaviour disorder [Unknown]
